FAERS Safety Report 9905168 (Version 1)
Quarter: 2013Q2

REPORT INFORMATION
  Report Type: Spontaneous
  Country: US (occurrence: None)
  Receive Date: 20130627
  Receipt Date: 20130627
  Transmission Date: 20140414
  Serious: No
  Sender: FDA-Public Use
  Company Number: 1000044657

PATIENT
  Age: 80 Year
  Sex: Female

DRUGS (2)
  1. LINZESS [Suspect]
     Indication: CONSTIPATION
     Route: 048
     Dates: start: 20130418, end: 20130421
  2. NORVASC (AMLODIPINE BESILATE) (AMLODIPINE BESILATE) [Concomitant]

REACTIONS (1)
  - Drug ineffective [None]
